FAERS Safety Report 14031382 (Version 2)
Quarter: 2017Q4

REPORT INFORMATION
  Report Type: Spontaneous
  Country: ZA (occurrence: ZA)
  Receive Date: 20171002
  Receipt Date: 20171002
  Transmission Date: 20180321
  Serious: Yes (Other)
  Sender: FDA-Public Use
  Company Number: ZA-MYLANLABS-2017M1060026

PATIENT
  Age: 51 Year
  Sex: Female

DRUGS (3)
  1. ECOTRIN [Suspect]
     Active Substance: ASPIRIN
     Indication: ANTIVIRAL PROPHYLAXIS
     Dosage: 81 MG, UNK
     Route: 048
  2. INDAPAMIDE MYLAN [Suspect]
     Active Substance: INDAPAMIDE
     Indication: HYPERTENSION
     Dosage: 2.5 MG, UNK
     Route: 048
  3. TAREG [Suspect]
     Active Substance: VALSARTAN
     Indication: HYPERTENSION
     Dosage: 80 MG, UNK
     Route: 048

REACTIONS (1)
  - Spinal operation [Unknown]

NARRATIVE: CASE EVENT DATE: 20170808
